FAERS Safety Report 23143359 (Version 1)
Quarter: 2023Q4

REPORT INFORMATION
  Report Type: Spontaneous
  Country: US (occurrence: US)
  Receive Date: 20231103
  Receipt Date: 20231103
  Transmission Date: 20240110
  Serious: No
  Sender: FDA-Public Use
  Company Number: US-MYOVANT SCIENCES GMBH-2023MYSCI0800068

PATIENT
  Sex: Male

DRUGS (1)
  1. ORGOVYX [Suspect]
     Active Substance: RELUGOLIX
     Indication: Prostate cancer
     Route: 065

REACTIONS (1)
  - Therapy interrupted [Unknown]
